FAERS Safety Report 11281095 (Version 2)
Quarter: 2015Q3

REPORT INFORMATION
  Report Type: Spontaneous
  Country: AT (occurrence: AT)
  Receive Date: 20150717
  Receipt Date: 20150819
  Transmission Date: 20151125
  Serious: Yes (Other)
  Sender: FDA-Public Use
  Company Number: AT-INCYTE CORPORATION-2015IN003306

PATIENT
  Age: 61 Year
  Sex: Female

DRUGS (2)
  1. JAKAFI [Suspect]
     Active Substance: RUXOLITINIB
     Indication: MYELOFIBROSIS
     Dosage: 15 MG, BID
     Route: 065
  2. JAKAFI [Suspect]
     Active Substance: RUXOLITINIB
     Dosage: 20 MG, BID
     Route: 065

REACTIONS (9)
  - Abdominal discomfort [Unknown]
  - General physical health deterioration [Not Recovered/Not Resolved]
  - Traumatic haematoma [Unknown]
  - Weight decreased [Recovering/Resolving]
  - Blood lactate dehydrogenase increased [Unknown]
  - Blast cell count increased [Unknown]
  - White blood cell count increased [Unknown]
  - Haemoglobin decreased [Unknown]
  - Oedema peripheral [Recovering/Resolving]
